FAERS Safety Report 25047463 (Version 1)
Quarter: 2025Q1

REPORT INFORMATION
  Report Type: Spontaneous
  Country: DE (occurrence: DE)
  Receive Date: 20250306
  Receipt Date: 20250306
  Transmission Date: 20250409
  Serious: Yes (Other)
  Sender: DAIICHI
  Company Number: DE-DSJP-DS-2025-126937-DE

PATIENT
  Age: 83 Year
  Sex: Male
  Weight: 90 kg

DRUGS (1)
  1. EDOXABAN TOSYLATE [Suspect]
     Active Substance: EDOXABAN TOSYLATE
     Indication: Atrial fibrillation
     Dosage: 30 MG, QD
     Route: 065
     Dates: start: 202309

REACTIONS (5)
  - Renal impairment [Unknown]
  - Wound haemorrhage [Recovered/Resolved]
  - International normalised ratio abnormal [Unknown]
  - Prescribed overdose [Unknown]
  - Product dose omission in error [Unknown]

NARRATIVE: CASE EVENT DATE: 20250218
